FAERS Safety Report 25535625 (Version 1)
Quarter: 2025Q3

REPORT INFORMATION
  Report Type: Spontaneous
  Country: US (occurrence: None)
  Receive Date: 20250709
  Receipt Date: 20250709
  Transmission Date: 20251021
  Serious: Yes (Death, Other)
  Sender: FDA-CTU
  Company Number: None

PATIENT
  Age: 41 Year
  Sex: Female

DRUGS (16)
  1. JARDIANCE [Suspect]
     Active Substance: EMPAGLIFLOZIN
     Indication: Cardiac failure congestive
     Dosage: OTHER QUANTITY : 1 TABLET(S);?FREQUENCY : DAILY;?
     Route: 048
     Dates: start: 20250201, end: 20250613
  2. Hydrocortisone taper (given dexamethasone in the hospital) [Concomitant]
  3. amantadine 100mg TID [Concomitant]
  4. pravastatin 40mg daily [Concomitant]
  5. Eliquis 2.5mg BID [Concomitant]
  6. methylphenidate 30mg BID [Concomitant]
  7. Trihexyphenidyl 1mg BID [Concomitant]
  8. SYNTHROID [Concomitant]
     Active Substance: LEVOTHYROXINE SODIUM
  9. VITAMINS [Concomitant]
     Active Substance: VITAMINS
  10. VITAMIN C [Concomitant]
     Active Substance: ASCORBIC ACID
  11. VITAMIN B6 [Concomitant]
     Active Substance: PYRIDOXINE HYDROCHLORIDE
  12. VITAMIN D3 [Concomitant]
     Active Substance: CHOLECALCIFEROL
  13. senna PRN [Concomitant]
  14. miralax PRN [Concomitant]
  15. PROTEIN [Concomitant]
     Active Substance: PROTEIN
  16. CLARITIN [Concomitant]
     Active Substance: LORATADINE

REACTIONS (2)
  - Dehydration [None]
  - Generalised tonic-clonic seizure [None]

NARRATIVE: CASE EVENT DATE: 20250201
